FAERS Safety Report 21743666 (Version 1)
Quarter: 2022Q4

REPORT INFORMATION
  Report Type: Spontaneous
  Country: GB (occurrence: GB)
  Receive Date: 20221217
  Receipt Date: 20221217
  Transmission Date: 20230113
  Serious: Yes (Hospitalization, Other)
  Sender: FDA-Public Use
  Company Number: GB-MLMSERVICE-20221206-3954947-1

PATIENT
  Age: 4 Decade
  Sex: Female

DRUGS (4)
  1. ARIPIPRAZOLE [Suspect]
     Active Substance: ARIPIPRAZOLE
     Indication: Schizophrenia
  2. FLUOXETINE [Suspect]
     Active Substance: FLUOXETINE HYDROCHLORIDE
     Indication: Schizophrenia
  3. VALPROATE SODIUM [Suspect]
     Active Substance: VALPROATE SODIUM
     Indication: Schizophrenia
  4. INSULIN NOS [Concomitant]
     Active Substance: INSULIN NOS
     Indication: Gestational diabetes

REACTIONS (2)
  - Femoral neck fracture [Recovering/Resolving]
  - Bone marrow oedema syndrome [Recovering/Resolving]
